FAERS Safety Report 17992519 (Version 1)
Quarter: 2020Q3

REPORT INFORMATION
  Report Type: Spontaneous
  Country: PT (occurrence: PT)
  Receive Date: 20200707
  Receipt Date: 20200707
  Transmission Date: 20201103
  Serious: Yes (Other)
  Sender: FDA-Public Use
  Company Number: NVSC2020PT187691

PATIENT
  Age: 45 Year
  Sex: Female

DRUGS (7)
  1. BUPROPION. [Suspect]
     Active Substance: BUPROPION
     Indication: OVERWEIGHT
     Dosage: UNK
     Route: 048
     Dates: start: 20200430, end: 20200511
  2. CENTELLA ASIATICA [Suspect]
     Active Substance: CENTELLA ASIATICA WHOLE
     Indication: OVERWEIGHT
     Dosage: UNK
     Route: 048
     Dates: start: 20200430, end: 20200511
  3. FUROSEMIDE. [Suspect]
     Active Substance: FUROSEMIDE
     Indication: OVERWEIGHT
     Dosage: UNK
     Route: 048
     Dates: start: 20200430, end: 20200511
  4. CHLORDIAZEPOXIDE. [Suspect]
     Active Substance: CHLORDIAZEPOXIDE
     Indication: OVERWEIGHT
     Dosage: UNK
     Route: 048
     Dates: start: 20200430, end: 20200511
  5. FLUOXETINA [Suspect]
     Active Substance: FLUOXETINE HYDROCHLORIDE
     Indication: OVERWEIGHT
     Dosage: UNK
     Route: 048
     Dates: start: 20200430, end: 20200511
  6. SILYMARIN [Suspect]
     Active Substance: DIETARY SUPPLEMENT\HERBALS\MILK THISTLE
     Indication: OVERWEIGHT
     Dosage: UNK
     Route: 048
     Dates: start: 20200430, end: 20200511
  7. CASCARA [Suspect]
     Active Substance: RHAMNUS PURSHIANA BARK EXTRACT
     Indication: OVERWEIGHT
     Dosage: UNK
     Route: 048
     Dates: start: 20200430, end: 20200511

REACTIONS (2)
  - Rash maculo-papular [Recovered/Resolved]
  - Pruritus [Recovered/Resolved]

NARRATIVE: CASE EVENT DATE: 20200504
